FAERS Safety Report 9967330 (Version 2)
Quarter: 2014Q1

REPORT INFORMATION
  Report Type: Report from Study
  Country: US (occurrence: US)
  Receive Date: 20140305
  Receipt Date: 20140305
  Transmission Date: 20141002
  Serious: No
  Sender: FDA-Public Use
  Company Number: US-ABBVIE-13P-163-1116276-00

PATIENT
  Age: 33 Year
  Sex: Female

DRUGS (7)
  1. HUMIRA [Suspect]
     Indication: CROHN^S DISEASE
     Dosage: 1ST LOADING DOSE
     Route: 058
     Dates: start: 20130701, end: 20130701
  2. BIOTIN [Concomitant]
     Indication: SUPPLEMENTATION THERAPY
  3. NORCO [Concomitant]
     Indication: PAIN
  4. NORCO [Concomitant]
     Indication: PAIN
  5. BUDESONIDE [Concomitant]
     Indication: CROHN^S DISEASE
  6. ZOLOFT [Concomitant]
     Indication: DEPRESSION
  7. MULTIVITAMIN [Concomitant]
     Indication: PRODUCT USED FOR UNKNOWN INDICATION

REACTIONS (10)
  - Injection site bruising [Recovering/Resolving]
  - Injection site papule [Recovering/Resolving]
  - Injection site haemorrhage [Recovered/Resolved]
  - Increased tendency to bruise [Not Recovered/Not Resolved]
  - Alopecia [Not Recovered/Not Resolved]
  - Varicose vein [Not Recovered/Not Resolved]
  - Skin atrophy [Not Recovered/Not Resolved]
  - Oropharyngeal pain [Not Recovered/Not Resolved]
  - Haemoptysis [Not Recovered/Not Resolved]
  - Solar lentigo [Not Recovered/Not Resolved]
